FAERS Safety Report 9101923 (Version 1)
Quarter: 2013Q1

REPORT INFORMATION
  Report Type: Spontaneous
  Country: US (occurrence: None)
  Receive Date: 20130220
  Receipt Date: 20130220
  Transmission Date: 20140127
  Serious: Yes (Other)
  Sender: FDA-Public Use
  Company Number: None

PATIENT
  Age: 58 Year
  Sex: Female

DRUGS (2)
  1. PEGASYS [Suspect]
     Indication: HEPATITIS
     Dosage: RIBAVIRIN TAB  400MG  QAM + QPM?FROM  04/23/2012  TO  PRESENT
     Dates: start: 20120423
  2. RIBAVIRIN [Suspect]
     Indication: HEPATITIS
     Dosage: PEGASYS AUTHINJECTOR  180MCG  QWEEK?FROM  04/23/2012  TO  PRESENT
     Dates: start: 20120423

REACTIONS (3)
  - Stomatitis [None]
  - Weight decreased [None]
  - Hypophagia [None]
